FAERS Safety Report 15459545 (Version 1)
Quarter: 2018Q4

REPORT INFORMATION
  Report Type: Spontaneous
  Country: PL (occurrence: PL)
  Receive Date: 20181003
  Receipt Date: 20181003
  Transmission Date: 20190204
  Serious: Yes (Other)
  Sender: FDA-Public Use
  Company Number: PL-GLAXOSMITHKLINE-PL2016200340

PATIENT

DRUGS (2)
  1. TERBINAFINE. [Suspect]
     Active Substance: TERBINAFINE
     Indication: TRICHOPHYTOSIS
     Dosage: 125 MG, QD
     Route: 065
  2. TERBINAFINE. [Suspect]
     Active Substance: TERBINAFINE
     Dosage: 125 MG, QD
     Route: 065

REACTIONS (9)
  - Leukocytosis [Unknown]
  - Erythema [Unknown]
  - Malaise [Unknown]
  - Paradoxical drug reaction [Unknown]
  - Body temperature increased [Unknown]
  - Chills [Unknown]
  - Eosinophilia [Unknown]
  - Rash pustular [Unknown]
  - Oedema [Unknown]
